FAERS Safety Report 5827008-3 (Version None)
Quarter: 2008Q3

REPORT INFORMATION
  Report Type: 
  Country: None (occurrence: None)
  Receive Date: 20080730
  Receipt Date: 20080729
  Transmission Date: 20090109
  Serious: Yes (Hospitalization)
  Sender: FDA-Public Use
  Company Number: A0740082A

PATIENT
  Age: 32 Year
  Sex: Female
  Weight: 70 kg

DRUGS (1)
  1. ALLI [Suspect]
     Route: 048

REACTIONS (13)
  - ABDOMINAL DISTENSION [None]
  - ABDOMINAL PAIN [None]
  - APPENDIX DISORDER [None]
  - ASTHENIA [None]
  - CHANGE OF BOWEL HABIT [None]
  - CONSTIPATION [None]
  - DIARRHOEA [None]
  - DYSSTASIA [None]
  - FAECAL INCONTINENCE [None]
  - FLATULENCE [None]
  - PROCEDURAL PAIN [None]
  - RECTAL DISCHARGE [None]
  - VOMITING [None]
